FAERS Safety Report 20653473 (Version 8)
Quarter: 2023Q2

REPORT INFORMATION
  Report Type: Report from Study
  Country: BR (occurrence: BR)
  Receive Date: 20220330
  Receipt Date: 20230523
  Transmission Date: 20230721
  Serious: Yes (Hospitalization, Other)
  Sender: FDA-Public Use
  Company Number: BR-TAKEDA-2022TUS020052

PATIENT
  Age: 12 Year
  Sex: Male
  Weight: 56 kg

DRUGS (5)
  1. HEMO-8R [Suspect]
     Active Substance: ANTIHEMOPHILIC FACTOR, HUMAN RECOMBINANT
     Indication: Prophylaxis
     Dosage: UNK
     Route: 042
     Dates: start: 20160428
  2. HEMO-8R [Suspect]
     Active Substance: ANTIHEMOPHILIC FACTOR, HUMAN RECOMBINANT
     Indication: Factor VIII deficiency
  3. IBUPROFEN [Concomitant]
     Active Substance: IBUPROFEN
     Indication: Fracture
     Dosage: 40 DOSAGE FORM, QD
     Route: 065
     Dates: start: 20170107, end: 20170108
  4. IBUPROFEN [Concomitant]
     Active Substance: IBUPROFEN
     Indication: Pain
     Dosage: 300 MILLIGRAM, TID
     Route: 065
     Dates: start: 20190922, end: 20190929
  5. ACETAMINOPHEN [Concomitant]
     Active Substance: ACETAMINOPHEN
     Indication: Fracture
     Dosage: 500 MILLIGRAM, QD
     Route: 065
     Dates: start: 20190922, end: 20190924

REACTIONS (3)
  - Crohn^s disease [Recovered/Resolved]
  - Abdominal pain [Recovered/Resolved]
  - Vomiting [Recovered/Resolved]

NARRATIVE: CASE EVENT DATE: 20220321
